FAERS Safety Report 24004140 (Version 1)
Quarter: 2024Q2

REPORT INFORMATION
  Report Type: Spontaneous
  Country: DE (occurrence: DE)
  Receive Date: 20240624
  Receipt Date: 20240624
  Transmission Date: 20240715
  Serious: Yes (Other)
  Sender: FDA-Public Use
  Company Number: DE-EMBRYOTOX-202309125

PATIENT
  Sex: Female
  Weight: 72 kg

DRUGS (7)
  1. QUETIAPINE [Suspect]
     Active Substance: QUETIAPINE
     Indication: Psychotic disorder
     Dosage: UNK(300 [MG/D ]/ 200 MG RETARDED AND 100 MG UNRETARDED)
     Route: 048
     Dates: start: 20230330, end: 20231228
  2. ACTRAPID [Concomitant]
     Active Substance: INSULIN HUMAN
     Indication: Gestational diabetes
     Dosage: 20 INTERNATIONAL UNIT, ONCE A DAY
     Route: 058
     Dates: start: 20231014, end: 20231228
  3. CODEINE [Concomitant]
     Active Substance: CODEINE
     Indication: Cough
     Dosage: 10 GTT DROPS, ONCE A DAY
     Route: 048
     Dates: start: 20231102, end: 20231110
  4. METHYLDOPA [Concomitant]
     Active Substance: METHYLDOPA
     Indication: Hypertension
     Dosage: 2 DOSAGE FORM, ONCE A DAY(STARTED IN THE COURSE OF PREGNANCY, 2 TABLETS/DAY, NO DETAILS KNOWN)
     Route: 048
  5. METOPROLOL SUCCINATE [Concomitant]
     Active Substance: METOPROLOL SUCCINATE
     Indication: Hypertension
     Dosage: 23.75 MILLIGRAM, ONCE A DAY
     Route: 048
     Dates: start: 20230330, end: 20231228
  6. PROTAPHANE [Concomitant]
     Active Substance: INSULIN HUMAN
     Indication: Gestational diabetes
     Dosage: 16 INTERNATIONAL UNIT, ONCE A DAY
     Route: 058
     Dates: start: 20231014, end: 20231228
  7. PAROXETINE HYDROCHLORIDE [Concomitant]
     Active Substance: PAROXETINE HYDROCHLORIDE\PAROXETINE HYDROCHLORIDE ANHYDROUS
     Indication: Psychotic disorder
     Dosage: UNK(80 [MG/D ]/ DOSAGE UNCLEAR! 40 OR 80 MG/D)
     Route: 048
     Dates: start: 20230330, end: 20231228

REACTIONS (2)
  - Gestational diabetes [Recovered/Resolved]
  - Exposure during pregnancy [Unknown]
